FAERS Safety Report 8212363-X (Version None)
Quarter: 2012Q1

REPORT INFORMATION
  Report Type: 
  Country: None (occurrence: None)
  Receive Date: 20120228
  Receipt Date: 20110914
  Transmission Date: 20120608
  Serious: Yes (Hospitalization)
  Sender: FDA-Public Use
  Company Number: US201107007636

PATIENT
  Age: 42 Year
  Sex: Female
  Weight: 216 kg

DRUGS (15)
  1. DEPAKOTE [Concomitant]
  2. COGENTIN [Concomitant]
  3. OLANZAPINE [Suspect]
     Indication: SCHIZOPHRENIA
     Dosage: INTRAMUSCULAR
     Route: 030
     Dates: start: 20101216, end: 20110112
  4. OLANZAPINE [Suspect]
     Indication: SCHIZOPHRENIA
     Dosage: INTRAMUSCULAR
     Route: 030
     Dates: start: 20110504, end: 20110601
  5. OLANZAPINE [Suspect]
     Indication: SCHIZOPHRENIA
     Dosage: INTRAMUSCULAR
     Route: 030
     Dates: start: 20110406, end: 20110503
  6. OLANZAPINE [Suspect]
     Indication: SCHIZOPHRENIA
     Dosage: INTRAMUSCULAR
     Route: 030
     Dates: start: 20110113, end: 20110208
  7. OLANZAPINE [Suspect]
     Indication: SCHIZOPHRENIA
     Dosage: INTRAMUSCULAR
     Route: 030
     Dates: start: 20110602, end: 20110628
  8. OLANZAPINE [Suspect]
     Indication: SCHIZOPHRENIA
     Dosage: INTRAMUSCULAR
     Route: 030
     Dates: start: 20110830
  9. OLANZAPINE [Suspect]
     Indication: SCHIZOPHRENIA
     Dosage: INTRAMUSCULAR
     Route: 030
     Dates: start: 20101118, end: 20101215
  10. OLANZAPINE [Suspect]
     Indication: SCHIZOPHRENIA
     Dosage: INTRAMUSCULAR
     Route: 030
     Dates: start: 20110310, end: 20110405
  11. OLANZAPINE [Suspect]
     Indication: SCHIZOPHRENIA
     Dosage: INTRAMUSCULAR
     Route: 030
     Dates: start: 20101018, end: 20101117
  12. OLANZAPINE [Suspect]
     Indication: SCHIZOPHRENIA
     Dosage: INTRAMUSCULAR
     Route: 030
     Dates: start: 20110629, end: 20110726
  13. OLANZAPINE [Suspect]
     Indication: SCHIZOPHRENIA
     Dosage: INTRAMUSCULAR
     Route: 030
     Dates: start: 20110727
  14. OLANZAPINE [Suspect]
     Indication: SCHIZOPHRENIA
     Dosage: INTRAMUSCULAR
     Route: 030
     Dates: start: 20110209, end: 20110309
  15. ATIVAN [Concomitant]

REACTIONS (7)
  - DEPRESSED LEVEL OF CONSCIOUSNESS [None]
  - CONFUSIONAL STATE [None]
  - DISORIENTATION [None]
  - DIZZINESS [None]
  - HYPOTENSION [None]
  - SEDATION [None]
  - ASTHENIA [None]
